FAERS Safety Report 4435055-1 (Version None)
Quarter: 2004Q3

REPORT INFORMATION
  Report Type: 
  Country: None (occurrence: None)
  Receive Date: 20040827
  Receipt Date: 20040823
  Transmission Date: 20050211
  Serious: Yes (Death)
  Sender: FDA-Public Use
  Company Number: US-JNJFOC-20040807903

PATIENT
  Age: 67 Year
  Sex: Male

DRUGS (5)
  1. SPORANOX [Suspect]
     Indication: CRYPTOCOCCOSIS
     Route: 049
     Dates: start: 20040601
  2. LASIX [Concomitant]
     Route: 049
  3. DIFLUCAN [Concomitant]
     Route: 049
  4. PROCAIN [Concomitant]
     Route: 050
  5. PREDNISONE [Concomitant]

REACTIONS (2)
  - MYOCARDIAL INFARCTION [None]
  - PLEURAL EFFUSION [None]
